FAERS Safety Report 13800750 (Version 1)
Quarter: 2017Q3

REPORT INFORMATION
  Report Type: Spontaneous
  Country: US (occurrence: US)
  Receive Date: 20170727
  Receipt Date: 20170727
  Transmission Date: 20171127
  Serious: No
  Sender: FDA-Public Use
  Company Number: US-TARO-2016TAR00706

PATIENT
  Sex: Female

DRUGS (3)
  1. FLUOCINONIDE 0.05% [Suspect]
     Active Substance: FLUOCINONIDE
     Indication: DYSHIDROTIC ECZEMA
     Dosage: UNK, 1X/DAY
     Dates: start: 201601, end: 201606
  2. FLUOCINONIDE 0.05% [Suspect]
     Active Substance: FLUOCINONIDE
     Dosage: 2 WEEKS ON; 2 WEEKS OFF
  3. HYLATOPIC PLUS CREAM [Suspect]
     Active Substance: EMOLLIENTS
     Indication: DYSHIDROTIC ECZEMA
     Dosage: UNK

REACTIONS (3)
  - Blister [Unknown]
  - Withdrawal syndrome [Unknown]
  - Pain [Unknown]
